FAERS Safety Report 6547838-2 (Version None)
Quarter: 2010Q1

REPORT INFORMATION
  Report Type: 
  Country: None (occurrence: None)
  Receive Date: 20100124
  Receipt Date: 20091016
  Transmission Date: 20100710
  Serious: Yes (Hospitalization)
  Sender: FDA-Public Use
  Company Number: US-ALEXION-A200900851

PATIENT
  Sex: Female

DRUGS (12)
  1. SOLIRIS [Suspect]
     Indication: PAROXYSMAL NOCTURNAL HAEMOGLOBINURIA
     Dosage: 600 MG, WEEKLY FOR 4 WEEKS
     Route: 042
     Dates: start: 20090316, end: 20090401
  2. SOLIRIS [Suspect]
     Dosage: 900 MG, EVERY TWO WEEKS
     Route: 042
     Dates: start: 20090401
  3. COUMADIN [Concomitant]
     Indication: ANTICOAGULANT THERAPY
     Dosage: UNK
     Route: 048
     Dates: start: 20091008
  4. LISINOPRIL [Concomitant]
     Dosage: 4 MG, QD
     Dates: start: 20091008
  5. SOTALOL [Concomitant]
     Dosage: 80 MG, QD
     Dates: start: 20091008
  6. AMLODIPINE BESYLATE [Concomitant]
     Dosage: 5 MG, QD
     Dates: start: 20091008
  7. ESCITALOPRAM OXALATE [Concomitant]
     Dosage: 10 MG, QD
     Dates: start: 20091008
  8. ASPIRIN [Concomitant]
     Dosage: 81 MG, QD
     Dates: start: 20091008
  9. METFORMIN [Concomitant]
     Dosage: 500 MG, QD
     Dates: start: 20091008
  10. FOLIC ACID [Concomitant]
     Dosage: 1 MG, QD
     Dates: start: 20091008
  11. INSULIN GLARGINE [Concomitant]
     Dosage: 50 MG, QD
     Dates: start: 20091008
  12. INSULIN ASPART [Concomitant]
     Dosage: 12 IU, TID
     Dates: start: 20091008

REACTIONS (2)
  - HEADACHE [None]
  - HYDROCEPHALUS [None]
